FAERS Safety Report 9252908 (Version 1)
Quarter: 2013Q2

REPORT INFORMATION
  Report Type: Spontaneous
  Country: US (occurrence: US)
  Receive Date: 20130424
  Receipt Date: 20130424
  Transmission Date: 20140414
  Serious: No
  Sender: FDA-Public Use
  Company Number: US-BAUSCH-BL-2012-000734

PATIENT
  Age: 69 Year
  Sex: Male

DRUGS (1)
  1. LOTEMAX (LOTEPREDNOL ETABONATE OPHTHALMIC SUSPENSION 0.5%) [Suspect]
     Indication: CONJUNCTIVITIS
     Dosage: 6 GTT
     Route: 047

REACTIONS (3)
  - Rash pruritic [Unknown]
  - Urticaria [Unknown]
  - Pain [Unknown]
